FAERS Safety Report 16011763 (Version 2)
Quarter: 2019Q2

REPORT INFORMATION
  Report Type: Spontaneous
  Country: CH (occurrence: CH)
  Receive Date: 20190227
  Receipt Date: 20190411
  Transmission Date: 20190711
  Serious: Yes (Other)
  Sender: FDA-Public Use
  Company Number: PHHY2019CH038060

PATIENT
  Sex: Female

DRUGS (1)
  1. GILENYA [Suspect]
     Active Substance: FINGOLIMOD HYDROCHLORIDE
     Indication: MULTIPLE SCLEROSIS
     Dosage: UNK
     Route: 065
     Dates: start: 20140820, end: 20181003

REACTIONS (4)
  - Multiple sclerosis relapse [Recovering/Resolving]
  - Central nervous system lesion [Unknown]
  - Neuralgia [Unknown]
  - Lymphopenia [Unknown]

NARRATIVE: CASE EVENT DATE: 20181003
